FAERS Safety Report 9260182 (Version 1)
Quarter: 2013Q2

REPORT INFORMATION
  Report Type: Spontaneous
  Country: US (occurrence: US)
  Receive Date: 20130429
  Receipt Date: 20130429
  Transmission Date: 20140414
  Serious: No
  Sender: FDA-Public Use
  Company Number: US-PFIZER INC-2013130772

PATIENT
  Age: 41 Year
  Sex: Female

DRUGS (1)
  1. PRISTIQ [Suspect]
     Indication: AFFECTIVE DISORDER
     Dosage: 50 MG, 1X/DAY
     Route: 048
     Dates: end: 201304

REACTIONS (1)
  - Swelling face [Unknown]
